FAERS Safety Report 7946532-0 (Version None)
Quarter: 2011Q4

REPORT INFORMATION
  Report Type: 
  Country: None (occurrence: None)
  Receive Date: 20111129
  Receipt Date: 20111118
  Transmission Date: 20120403
  Serious: Yes (Hospitalization)
  Sender: FDA-Public Use
  Company Number: US-JNJFOC-20111107036

PATIENT
  Sex: Female
  Weight: 83.46 kg

DRUGS (5)
  1. LEXAPRO [Concomitant]
     Indication: DEPRESSION
  2. TEGRETOL [Concomitant]
     Indication: CONVULSION
  3. ABILIFY [Suspect]
     Indication: DEPRESSION
  4. INVEGA SUSTENNA [Suspect]
     Indication: SCHIZOPHRENIA
     Route: 030
     Dates: start: 20100328
  5. INVEGA SUSTENNA [Suspect]
     Route: 030
     Dates: start: 20110707

REACTIONS (1)
  - SUICIDE ATTEMPT [None]
